FAERS Safety Report 6459095-6 (Version None)
Quarter: 2009Q4

REPORT INFORMATION
  Report Type: 
  Country: None (occurrence: None)
  Receive Date: 20091125
  Receipt Date: 20091125
  Transmission Date: 20100525
  Serious: Yes (Hospitalization)
  Sender: FDA-Public Use
  Company Number: None

PATIENT
  Age: 46 Year
  Sex: Female
  Weight: 79.3795 kg

DRUGS (1)
  1. CYMBALTA [Suspect]
     Dosage: 30 MCG 1 DAILY PO
     Route: 048

REACTIONS (15)
  - BLOOD PRESSURE INCREASED [None]
  - BRONCHITIS [None]
  - DIZZINESS [None]
  - HEADACHE [None]
  - INFLUENZA [None]
  - LOSS OF CONSCIOUSNESS [None]
  - MUSCLE SPASMS [None]
  - MYALGIA [None]
  - NAUSEA [None]
  - PAIN IN JAW [None]
  - PALPITATIONS [None]
  - PARAESTHESIA [None]
  - PRODUCT QUALITY ISSUE [None]
  - VISION BLURRED [None]
  - WEIGHT INCREASED [None]
